FAERS Safety Report 16403466 (Version 1)
Quarter: 2019Q2

REPORT INFORMATION
  Report Type: Spontaneous
  Country: US (occurrence: US)
  Receive Date: 20190501
  Receipt Date: 20190501
  Transmission Date: 20190711
  Serious: No
  Sender: FDA-Public Use
  Company Number: None

PATIENT
  Age: 64 Year
  Sex: Male

DRUGS (1)
  1. PREDNISONE TAB WATSON [Suspect]
     Active Substance: PREDNISONE
     Route: 048
     Dates: start: 201903

REACTIONS (3)
  - Hot flush [None]
  - Pollakiuria [None]
  - Increased appetite [None]

NARRATIVE: CASE EVENT DATE: 20190403
